FAERS Safety Report 5866162-4 (Version None)
Quarter: 2008Q3

REPORT INFORMATION
  Report Type: 
  Country: None (occurrence: None)
  Receive Date: 20080829
  Receipt Date: 20080825
  Transmission Date: 20090109
  Serious: Yes (Hospitalization)
  Sender: FDA-Public Use
  Company Number: US-MERCK-0808USA04639

PATIENT
  Sex: Male

DRUGS (4)
  1. EMEND [Suspect]
     Indication: PROPHYLAXIS OF NAUSEA AND VOMITING
     Route: 048
  2. EMEND [Suspect]
     Route: 048
  3. DECADRON SRC [Concomitant]
     Route: 065
  4. METHADONE HCL [Suspect]
     Route: 065

REACTIONS (3)
  - BREAKTHROUGH PAIN [None]
  - DRUG INTERACTION [None]
  - PAIN [None]
